FAERS Safety Report 14933273 (Version 1)
Quarter: 2020Q3

REPORT INFORMATION
  Report Type: Spontaneous
  Country: GB (occurrence: GB)
  Receive Date: 20180524
  Receipt Date: 20180524
  Transmission Date: 20201105
  Serious: Yes (Hospitalization)
  Sender: FDA-Public Use
  Company Number: GB-ROCHE-2128049

PATIENT
  Age: 54 Year
  Sex: Female
  Weight: 93 kg

DRUGS (8)
  1. HYPROMELLOSE [Concomitant]
     Active Substance: HYPROMELLOSES
     Indication: DRY EYE
     Route: 061
  2. BENZYDAMINE [Concomitant]
     Active Substance: BENZYDAMINE
     Indication: MUCOSAL INFLAMMATION
     Dosage: ORAL RINSE
     Route: 065
  3. QUETIAPINE. [Concomitant]
     Active Substance: QUETIAPINE
     Indication: DEPRESSION
     Route: 048
  4. CANESTEN HC [Concomitant]
     Active Substance: CLOTRIMAZOLE\HYDROCORTISONE
     Indication: CANDIDA INFECTION
     Route: 061
  5. NITROFURANTOIN. [Concomitant]
     Active Substance: NITROFURANTOIN
     Indication: URINARY TRACT INFECTION
     Route: 048
  6. COTRIMOXAZOLE [Concomitant]
     Active Substance: SULFAMETHOXAZOLE\TRIMETHOPRIM
     Indication: CANDIDA INFECTION
     Route: 048
  7. VENLAFAXINE [Concomitant]
     Active Substance: VENLAFAXINE HYDROCHLORIDE
     Indication: DEPRESSION
     Route: 048
  8. ALECTINIB. [Suspect]
     Active Substance: ALECTINIB
     Indication: NON-SMALL CELL LUNG CANCER
     Route: 048
     Dates: start: 20180420

REACTIONS (1)
  - Pathological fracture [Recovering/Resolving]

NARRATIVE: CASE EVENT DATE: 20180501
